FAERS Safety Report 4299982-0 (Version None)
Quarter: 2004Q1

REPORT INFORMATION
  Report Type: 
  Country: None (occurrence: None)
  Receive Date: 20040218
  Receipt Date: 20040206
  Transmission Date: 20041129
  Serious: No
  Sender: FDA-Public Use
  Company Number: 04P-062-0249948-00

PATIENT
  Age: 65 Year
  Sex: Female

DRUGS (3)
  1. VALPROATE SODIUM [Suspect]
     Indication: HYPOMANIA
     Dosage: 900 MG 1 IN 1 D ORAL
     Route: 048
     Dates: start: 20031022, end: 20031031
  2. LITHIUM CARBONATE [Concomitant]
  3. AMITRIPTYLINE HYDROCHLORIDE [Concomitant]

REACTIONS (6)
  - ATAXIA [None]
  - DRUG LEVEL INCREASED [None]
  - DYSARTHRIA [None]
  - EXTENSOR PLANTAR RESPONSE [None]
  - LEUKOCYTOSIS [None]
  - UPPER MOTOR NEURONE LESION [None]
